FAERS Safety Report 12692613 (Version 1)
Quarter: 2016Q3

REPORT INFORMATION
  Report Type: Report from Study
  Country: FR (occurrence: FR)
  Receive Date: 20160829
  Receipt Date: 20160829
  Transmission Date: 20161109
  Serious: Yes (Hospitalization)
  Sender: FDA-Public Use
  Company Number: FR-BAXTER-2016BAX043764

PATIENT
  Age: 77 Year
  Sex: Male

DRUGS (27)
  1. VENETOCLAX [Suspect]
     Active Substance: VENETOCLAX
     Dosage: MOST RECENT DOSE PRIOR TO EVENT
     Route: 048
     Dates: start: 20160705
  2. PRAVASTATIN. [Concomitant]
     Active Substance: PRAVASTATIN
     Indication: HYPERCHOLESTEROLAEMIA
     Route: 065
     Dates: start: 20160526
  3. INEXIUM [Concomitant]
     Active Substance: ESOMEPRAZOLE
     Indication: GASTROOESOPHAGEAL REFLUX DISEASE
     Route: 065
     Dates: start: 20160601
  4. TAZOCILLINE [Concomitant]
     Active Substance: PIPERACILLIN SODIUM\TAZOBACTAM SODIUM
     Indication: PYREXIA
     Route: 065
     Dates: start: 20160707
  5. ENDOXAN 1000 MG, POUDRE POUR SOLUTION INJECTABLE [Suspect]
     Active Substance: CYCLOPHOSPHAMIDE
     Dosage: 1280 MG, MOST RECENT DOSE PRIOR TO EVENT
     Route: 042
     Dates: start: 20160719
  6. VENETOCLAX [Suspect]
     Active Substance: VENETOCLAX
     Indication: NON-HODGKIN^S LYMPHOMA
     Route: 048
     Dates: start: 20160610
  7. DEXAFREE [Concomitant]
     Active Substance: DEXAMETHASONE SODIUM PHOSPHATE
     Indication: EYE INFLAMMATION
     Route: 065
     Dates: start: 20160526
  8. REFRESH CELLUVISC [Concomitant]
     Active Substance: CARBOXYMETHYLCELLULOSE SODIUM
     Indication: DRY EYE
     Route: 065
     Dates: start: 2014
  9. REPAGLINIDE. [Concomitant]
     Active Substance: REPAGLINIDE
     Indication: TYPE 2 DIABETES MELLITUS
     Route: 065
     Dates: start: 20160526
  10. ZELITREX [Concomitant]
     Active Substance: VALACYCLOVIR HYDROCHLORIDE
     Indication: VIRAL INFECTION
     Route: 065
     Dates: start: 20160607
  11. TRAMADOL. [Concomitant]
     Active Substance: TRAMADOL
     Indication: PAIN
     Route: 065
     Dates: start: 20160603
  12. ASPEGIC [Concomitant]
     Active Substance: ASPIRIN DL-LYSINE
     Indication: PAIN
     Dosage: FRANCE
     Route: 065
     Dates: start: 20160528
  13. RITUXIMAB [Suspect]
     Active Substance: RITUXIMAB
     Indication: NON-HODGKIN^S LYMPHOMA
     Route: 042
     Dates: start: 20160607
  14. RITUXIMAB [Suspect]
     Active Substance: RITUXIMAB
     Dosage: 640 MG, MOST RECENT DOSE PRIOR TO EVENT
     Route: 042
     Dates: start: 20160719
  15. PREDNISONE. [Suspect]
     Active Substance: PREDNISONE
     Indication: NON-HODGKIN^S LYMPHOMA
     Dosage: DAILY FOR DAYS 1-5 OF EACH CYCLE
     Route: 048
     Dates: start: 20160607
  16. TITANOREINE [Concomitant]
     Active Substance: CARRAGEENAN\TITANIUM\ZINC
     Indication: HAEMORRHOIDS
     Route: 065
     Dates: start: 20160603
  17. LANTUS [Concomitant]
     Active Substance: INSULIN GLARGINE
     Indication: TYPE 2 DIABETES MELLITUS
     Route: 065
  18. SPASFON [Concomitant]
     Active Substance: PHLOROGLUCINOL
     Indication: ABDOMINAL PAIN UPPER
     Dosage: FRANCE
     Route: 065
     Dates: start: 20160527
  19. AMIKLIN [Concomitant]
     Active Substance: AMIKACIN SULFATE
     Indication: PYREXIA
     Route: 065
     Dates: start: 20160707
  20. ENDOXAN 1000 MG, POUDRE POUR SOLUTION INJECTABLE [Suspect]
     Active Substance: CYCLOPHOSPHAMIDE
     Indication: NON-HODGKIN^S LYMPHOMA
     Route: 042
     Dates: start: 20160607
  21. DOXORUBICIN [Suspect]
     Active Substance: DOXORUBICIN
     Dosage: 86 MG, MOST RECENT DOSE PRIOR TO EVENT
     Route: 042
     Dates: start: 20160719
  22. VINCRISTINE [Suspect]
     Active Substance: VINCRISTINE
     Indication: NON-HODGKIN^S LYMPHOMA
     Route: 042
     Dates: start: 20160607
  23. PREDNISONE. [Suspect]
     Active Substance: PREDNISONE
     Dosage: DAILY FOR DAYS 1-5 OF EACH CYCLE, MOST RECENT DOSE PRIOR TO EVENT
     Route: 048
     Dates: start: 20160723
  24. LEDERFOLINE [Concomitant]
     Active Substance: LEUCOVORIN CALCIUM
     Indication: HAEMATOTOXICITY
     Route: 065
     Dates: start: 20160608
  25. DOXORUBICIN [Suspect]
     Active Substance: DOXORUBICIN
     Indication: NON-HODGKIN^S LYMPHOMA
     Route: 042
     Dates: start: 20160607
  26. VINCRISTINE [Suspect]
     Active Substance: VINCRISTINE
     Dosage: 2 MG, MOST RECENT DOSE PRIOR TO EVENT
     Route: 042
     Dates: start: 20160719
  27. BACTRIM [Concomitant]
     Active Substance: SULFAMETHOXAZOLE\TRIMETHOPRIM
     Indication: BACTERIAL INFECTION
     Route: 065
     Dates: start: 20160608

REACTIONS (1)
  - Gastrointestinal pain [Recovering/Resolving]

NARRATIVE: CASE EVENT DATE: 20160808
